FAERS Safety Report 6006366-3 (Version None)
Quarter: 2008Q4

REPORT INFORMATION
  Report Type: 
  Country: None (occurrence: None)
  Receive Date: 20081216
  Receipt Date: 20081216
  Transmission Date: 20090506
  Serious: Yes (Hospitalization)
  Sender: FDA-Public Use
  Company Number: None

PATIENT
  Sex: Male
  Weight: 64 kg

DRUGS (2)
  1. HYDROXYCHLOROQUINE SULFATE [Suspect]
     Indication: GLIOBLASTOMA MULTIFORME
     Dosage: 800MG DAILY PO
     Route: 048
     Dates: start: 20081103, end: 20081124
  2. TEMOZOLOMIDE [Suspect]
     Indication: GLIOBLASTOMA MULTIFORME
     Dosage: 140MG DAILY PO
     Route: 048
     Dates: start: 20081103, end: 20081118

REACTIONS (8)
  - BRADYCARDIA [None]
  - DEEP VEIN THROMBOSIS [None]
  - DYSPHAGIA [None]
  - LOBAR PNEUMONIA [None]
  - OROPHARYNGEAL PAIN [None]
  - PLATELET COUNT DECREASED [None]
  - PULMONARY EMBOLISM [None]
  - TONGUE DISCOLOURATION [None]
